FAERS Safety Report 4494012-X (Version None)
Quarter: 2004Q4

REPORT INFORMATION
  Report Type: 
  Country: None (occurrence: None)
  Receive Date: 20041102
  Receipt Date: 20041015
  Transmission Date: 20050328
  Serious: Yes (Hospitalization)
  Sender: FDA-Public Use
  Company Number: USA041081287

PATIENT
  Age: 66 Year
  Sex: Female

DRUGS (2)
  1. GEMZAR [Suspect]
     Indication: NON-SMALL CELL LUNG CANCER
     Dates: start: 20040101
  2. CARBOPLATIN (CARBOPLATIN SANOFI-SYNTHELABO) [Concomitant]

REACTIONS (1)
  - PULMONARY HYPERTENSION [None]
